FAERS Safety Report 7551021-1 (Version None)
Quarter: 2011Q2

REPORT INFORMATION
  Report Type: 
  Country: None (occurrence: None)
  Receive Date: 20110616
  Receipt Date: 20110605
  Transmission Date: 20111010
  Serious: Yes (Hospitalization)
  Sender: FDA-Public Use
  Company Number: CA-ELI_LILLY_AND_COMPANY-CA201106001298

PATIENT
  Age: 70 Year
  Sex: Female

DRUGS (10)
  1. ALVESCO [Concomitant]
     Dosage: UNK, BID
  2. TIAZAC [Concomitant]
     Dosage: UNK
  3. SINGULAIR [Concomitant]
  4. SYMBICORT [Concomitant]
  5. NOVO-GESIC [Concomitant]
     Dosage: 3 DF, TID
  6. ALBUTEROL [Concomitant]
     Dosage: UNK, PRN
  7. ASPIRIN [Concomitant]
     Dosage: 80 MG, DAILY (1/D)
  8. FORTEO [Suspect]
     Indication: OSTEOPOROSIS
     Dosage: 20 UG, DAILY (1/D)
     Route: 058
     Dates: start: 20110124
  9. AVAPRO [Concomitant]
  10. LASIX [Concomitant]
     Dosage: 20 MG, BID

REACTIONS (4)
  - OEDEMA PERIPHERAL [None]
  - CATARACT [None]
  - PNEUMONIA [None]
  - HAEMOPTYSIS [None]
